FAERS Safety Report 5631593-4 (Version None)
Quarter: 2008Q1

REPORT INFORMATION
  Report Type: 
  Country: None (occurrence: None)
  Receive Date: 20080215
  Receipt Date: 20080212
  Transmission Date: 20080703
  Serious: Yes (Other)
  Sender: FDA-Public Use
  Company Number: 07122351

PATIENT
  Age: 77 Year
  Sex: Female

DRUGS (2)
  1. AMIODARONE HCL [Suspect]
     Indication: ATRIAL FIBRILLATION
     Dosage: 100MG, QD, ORAL
     Route: 048
     Dates: start: 20031101, end: 20080101
  2. ALIMTA [Concomitant]

REACTIONS (4)
  - LUNG NEOPLASM MALIGNANT [None]
  - NAUSEA [None]
  - PLEURAL EFFUSION [None]
  - PULMONARY OEDEMA [None]
